FAERS Safety Report 9681637 (Version 1)
Quarter: 2013Q4

REPORT INFORMATION
  Report Type: Spontaneous
  Country: US (occurrence: US)
  Receive Date: 20131111
  Receipt Date: 20131111
  Transmission Date: 20140711
  Serious: Yes (Other)
  Sender: FDA-Public Use
  Company Number: US-GLAXOSMITHKLINE-A1049007A

PATIENT
  Sex: Female

DRUGS (1)
  1. ABREVA [Suspect]
     Indication: ORAL HERPES

REACTIONS (6)
  - Application site irritation [Unknown]
  - Chapped lips [Unknown]
  - Oral herpes [Unknown]
  - Condition aggravated [Unknown]
  - Lip swelling [Unknown]
  - Anaphylactic shock [Unknown]
